FAERS Safety Report 16686665 (Version 1)
Quarter: 2019Q3

REPORT INFORMATION
  Report Type: Spontaneous
  Country: AU (occurrence: AU)
  Receive Date: 20190809
  Receipt Date: 20190809
  Transmission Date: 20191004
  Serious: Yes (Other)
  Sender: FDA-Public Use
  Company Number: AU-REGENERON PHARMACEUTICALS, INC.-2019-46637

PATIENT

DRUGS (2)
  1. EYLEA [Suspect]
     Active Substance: AFLIBERCEPT
     Dosage: LAST DOSE PRIOR TO EVENT ONSET, ONCE, RIGHT EYE
     Route: 031
     Dates: start: 20190531, end: 20190531
  2. EYLEA [Suspect]
     Active Substance: AFLIBERCEPT
     Indication: NEOVASCULAR AGE-RELATED MACULAR DEGENERATION
     Dosage: TOTAL OF 12 EYLEA DOSES BEFORE THE EVENT, RIGHT EYE
     Route: 031
     Dates: start: 201710

REACTIONS (4)
  - Endophthalmitis [Recovering/Resolving]
  - Blindness [Recovering/Resolving]
  - Hypopyon [Recovering/Resolving]
  - Corneal disorder [Recovering/Resolving]

NARRATIVE: CASE EVENT DATE: 20190602
